FAERS Safety Report 24240844 (Version 2)
Quarter: 2024Q3

REPORT INFORMATION
  Report Type: Spontaneous
  Country: US (occurrence: US)
  Receive Date: 20240823
  Receipt Date: 20240823
  Transmission Date: 20241016
  Serious: Yes (Hospitalization, Other)
  Sender: ROCHE
  Company Number: US-ROCHE-10000061370

PATIENT
  Age: 61 Year
  Sex: Male

DRUGS (1)
  1. EVRYSDI [Suspect]
     Active Substance: RISDIPLAM
     Indication: Spinal muscular atrophy
     Dosage: 5MG ONE TIME A DAY GIVEN EITHER ORALLY OR VIA A FEEDING TUBE
     Route: 048

REACTIONS (3)
  - Drain placement [Unknown]
  - Abdominal abscess [Unknown]
  - Product dose omission issue [Unknown]
